FAERS Safety Report 19599825 (Version 1)
Quarter: 2021Q3

REPORT INFORMATION
  Report Type: Spontaneous
  Country: US (occurrence: US)
  Receive Date: 20210723
  Receipt Date: 20210723
  Transmission Date: 20211014
  Serious: No
  Sender: FDA-Public Use
  Company Number: None

PATIENT
  Age: 69 Year
  Sex: Female
  Weight: 87.3 kg

DRUGS (10)
  1. BIOTIN 5000MCG [Concomitant]
  2. ASPIRIN EC 81MG [Concomitant]
  3. CALCIUM 600MG [Concomitant]
  4. ARIMIDEX 1MG [Concomitant]
  5. ATORVASTATIN 10MG [Concomitant]
     Active Substance: ATORVASTATIN
  6. TOPROL XL [Concomitant]
     Active Substance: METOPROLOL SUCCINATE
  7. SYNTHROID [Concomitant]
     Active Substance: LEVOTHYROXINE SODIUM
  8. IBRANCE [Suspect]
     Active Substance: PALBOCICLIB
     Indication: BREAST CANCER
     Dosage: ?          OTHER FREQUENCY:QD FOR 21/28 DAYS;?
     Route: 048
     Dates: start: 20200916
  9. VITAMIN D 1.25MG [Concomitant]
  10. METAMUCIL PLUS CALCIUM [Concomitant]

REACTIONS (2)
  - Therapy interrupted [None]
  - Tooth extraction [None]

NARRATIVE: CASE EVENT DATE: 20210723
